FAERS Safety Report 6090762-2 (Version None)
Quarter: 2009Q1

REPORT INFORMATION
  Report Type: 
  Country: None (occurrence: None)
  Receive Date: 20090224
  Receipt Date: 20090202
  Transmission Date: 20090719
  Serious: No
  Sender: FDA-Public Use
  Company Number: US-ABBOTT-09P-163-0501579-00

PATIENT
  Sex: Female
  Weight: 95.34 kg

DRUGS (1)
  1. SIMCOR [Suspect]
     Indication: BLOOD CHOLESTEROL
     Dosage: 2 AT NIGHT (2 IN 1 DAY)
     Dates: start: 20081101

REACTIONS (1)
  - BLOOD GLUCOSE INCREASED [None]
